FAERS Safety Report 6645387-4 (Version None)
Quarter: 2010Q1

REPORT INFORMATION
  Report Type: 
  Country: None (occurrence: None)
  Receive Date: 20100322
  Receipt Date: 20100317
  Transmission Date: 20100710
  Serious: Yes (Hospitalization)
  Sender: FDA-Public Use
  Company Number: US-GILEAD-2010-0027858

PATIENT
  Sex: Female
  Weight: 118.04 kg

DRUGS (21)
  1. LETAIRIS [Suspect]
     Indication: PULMONARY ARTERIAL HYPERTENSION
     Route: 048
     Dates: start: 20081104
  2. ASPIRIN [Concomitant]
  3. LASIX [Concomitant]
  4. LISINOPRIL [Concomitant]
  5. TOPROL-XL [Concomitant]
  6. CELLCEPT [Concomitant]
  7. PREDNISONE TAB [Concomitant]
  8. PLAQUENIL [Concomitant]
  9. AMITRIPTYLINE HCL [Concomitant]
  10. AMBIEN [Concomitant]
  11. LYRICA [Concomitant]
  12. EFFEXOR XR [Concomitant]
  13. SYNTHROID [Concomitant]
  14. CRESTOR [Concomitant]
  15. GLUCOPHAGE [Concomitant]
  16. OXYBUTYNIN [Concomitant]
  17. PRILOSEC [Concomitant]
  18. MOBIC [Concomitant]
  19. PROAIR HFA [Concomitant]
  20. MIACALCIN [Concomitant]
  21. VITAMIN D [Concomitant]

REACTIONS (2)
  - BRONCHITIS [None]
  - PNEUMONIA [None]
